FAERS Safety Report 4509824-3 (Version None)
Quarter: 2004Q4

REPORT INFORMATION
  Report Type: 
  Country: None (occurrence: None)
  Receive Date: 20041124
  Receipt Date: 20041022
  Transmission Date: 20050328
  Serious: Yes (Life-Threatening, Hospitalization, Other)
  Sender: FDA-Public Use
  Company Number: PHBS2004JP14231

PATIENT
  Age: 68 Year
  Sex: Male
  Weight: 52 kg

DRUGS (11)
  1. TEGRETOL [Suspect]
     Indication: EPILEPSY
     Route: 048
     Dates: end: 20040906
  2. CERCINE [Concomitant]
     Indication: EPILEPSY
     Route: 048
  3. DEPAKENE [Concomitant]
     Indication: EPILEPSY
     Route: 048
  4. TORSEMIDE [Concomitant]
     Indication: CARDIAC FAILURE CHRONIC
     Dosage: 8 MG/DAY
     Route: 048
  5. LANIRAPID [Concomitant]
     Indication: CARDIAC FAILURE CHRONIC
     Dosage: 0.05 MG/DAY
     Route: 048
     Dates: end: 20040820
  6. NU-LOTAN [Concomitant]
     Indication: CARDIAC FAILURE CHRONIC
     Dosage: 25 MG/DAY
     Route: 048
     Dates: end: 20040903
  7. ALDACTONE-A [Concomitant]
     Indication: CARDIAC FAILURE CHRONIC
     Dosage: 25 MG/DAY
     Route: 048
     Dates: end: 20040825
  8. ARTIST [Concomitant]
     Indication: CARDIAC FAILURE CHRONIC
     Dosage: 2.5 MG/DAY
     Route: 048
     Dates: end: 20040903
  9. LASIX [Concomitant]
     Indication: CARDIAC FAILURE CHRONIC
     Dosage: 80 MG/DAY
     Route: 048
  10. ZANTAC [Concomitant]
     Indication: GASTRITIS
     Dosage: 150 MG/DAY
     Route: 048
  11. WARFARIN [Concomitant]
     Indication: ATRIAL FIBRILLATION
     Dosage: 5.5 MG/DAY
     Route: 048

REACTIONS (22)
  - ANTICONVULSANT DRUG LEVEL BELOW THERAPEUTIC [None]
  - BLOOD CREATININE INCREASED [None]
  - BLOOD LACTATE DEHYDROGENASE INCREASED [None]
  - BLOOD POTASSIUM INCREASED [None]
  - BLOOD PRESSURE DECREASED [None]
  - BLOOD SODIUM DECREASED [None]
  - BLOOD UREA INCREASED [None]
  - BRADYCARDIA [None]
  - CARDIAC FAILURE [None]
  - CONDITION AGGRAVATED [None]
  - DYSPNOEA [None]
  - GAMMA-GLUTAMYLTRANSFERASE INCREASED [None]
  - HAEMATOCRIT DECREASED [None]
  - HAEMODIALYSIS [None]
  - HAEMOGLOBIN DECREASED [None]
  - HEART RATE INCREASED [None]
  - PLATELET COUNT DECREASED [None]
  - RED BLOOD CELL COUNT DECREASED [None]
  - RENAL IMPAIRMENT [None]
  - SINUS ARREST [None]
  - SOMNOLENCE [None]
  - URINE OUTPUT DECREASED [None]
